FAERS Safety Report 10714505 (Version 3)
Quarter: 2015Q1

REPORT INFORMATION
  Report Type: Report from Study
  Country: DE (occurrence: DE)
  Receive Date: 20150115
  Receipt Date: 20150219
  Transmission Date: 20150721
  Serious: Yes (Hospitalization)
  Sender: FDA-Public Use
  Company Number: DE-TEVA-534204USA

PATIENT
  Age: 57 Year
  Sex: Male

DRUGS (9)
  1. DIMETINDENE [Concomitant]
     Indication: PREMEDICATION
     Route: 042
     Dates: start: 20141201, end: 20141201
  2. FASTURTEC [Concomitant]
     Active Substance: RASBURICASE
     Indication: PROPHYLAXIS
     Route: 065
     Dates: start: 20141222, end: 20141222
  3. DECORTIN [Concomitant]
     Active Substance: PREDNISONE
     Indication: PREMEDICATION
     Route: 042
     Dates: start: 20141201, end: 20141201
  4. PARACETAMOL [Concomitant]
     Active Substance: ACETAMINOPHEN
     Indication: PREMEDICATION
     Route: 048
     Dates: start: 20141201, end: 20141201
  5. BENDAMUSTINE HYDROCHLORIDE [Suspect]
     Active Substance: BENDAMUSTINE HYDROCHLORIDE
     Indication: CHRONIC LYMPHOCYTIC LEUKAEMIA
     Dosage: 154.11 MG, UNKNOWN FREQ.
     Route: 042
     Dates: start: 20141202
  6. ALLOPURINOL. [Concomitant]
     Active Substance: ALLOPURINOL
     Indication: PRODUCT USED FOR UNKNOWN INDICATION
     Route: 065
     Dates: start: 20141205
  7. RANITIDIN [Concomitant]
     Active Substance: RANITIDINE HYDROCHLORIDE
     Indication: PREMEDICATION
     Route: 042
     Dates: start: 20141201, end: 20141201
  8. GRANISETRON [Concomitant]
     Active Substance: GRANISETRON
     Indication: PREMEDICATION
     Route: 042
     Dates: start: 20141202, end: 20141203
  9. RITUXIMAB [Suspect]
     Active Substance: RITUXIMAB
     Indication: CHRONIC LYMPHOCYTIC LEUKAEMIA
     Dosage: 825.61 MG, UNKNOWN FREQ.
     Route: 042
     Dates: start: 20141201

REACTIONS (2)
  - Blood lactate dehydrogenase increased [Recovered/Resolved]
  - Aspartate aminotransferase increased [Recovered/Resolved]

NARRATIVE: CASE EVENT DATE: 20141223
